FAERS Safety Report 6609183-6 (Version None)
Quarter: 2010Q1

REPORT INFORMATION
  Report Type: 
  Country: None (occurrence: None)
  Receive Date: 20100222
  Receipt Date: 20100211
  Transmission Date: 20100710
  Serious: Yes (Hospitalization)
  Sender: FDA-Public Use
  Company Number: 231639J10USA

PATIENT
  Age: 54 Year
  Sex: Female
  Weight: 75 kg

DRUGS (6)
  1. REBIF [Suspect]
     Indication: MULTIPLE SCLEROSIS
     Dosage: SUBCUTANEOUS; 44 MCG, 3 IN 1 WEEKS, SUBCUTANEOUS
     Route: 058
     Dates: start: 20080101
  2. METFORMIN HCL [Concomitant]
  3. GLYBURIDE [Concomitant]
  4. VASOTEC [Concomitant]
  5. FLUID PILL (ALL OTHER THERAPEUTIC PRODUCTS) [Concomitant]
  6. COREG [Concomitant]

REACTIONS (1)
  - PULMONARY THROMBOSIS [None]
